FAERS Safety Report 13023761 (Version 1)
Quarter: 2016Q4

REPORT INFORMATION
  Report Type: Spontaneous
  Country: US (occurrence: US)
  Receive Date: 20161213
  Receipt Date: 20161213
  Transmission Date: 20170207
  Serious: No
  Sender: FDA-Public Use
  Company Number: None

PATIENT
  Age: 69 Year
  Sex: Female
  Weight: 70.6 kg

DRUGS (4)
  1. SYNTHROID [Concomitant]
     Active Substance: LEVOTHYROXINE SODIUM
  2. INVOKANA [Concomitant]
     Active Substance: CANAGLIFLOZIN
  3. LEXAPRO [Concomitant]
     Active Substance: ESCITALOPRAM OXALATE
  4. RESTASIS [Suspect]
     Active Substance: CYCLOSPORINE
     Indication: DRY EYE
     Dosage: 1 DROP(S) TWICE A DAY OPHTHALMIC?
     Route: 047
     Dates: start: 20161205, end: 20161207

REACTIONS (4)
  - Eye pain [None]
  - Eye swelling [None]
  - Eye pruritus [None]
  - Eye discharge [None]

NARRATIVE: CASE EVENT DATE: 20161206
